FAERS Safety Report 14920261 (Version 1)
Quarter: 2018Q2

REPORT INFORMATION
  Report Type: Spontaneous
  Country: US (occurrence: US)
  Receive Date: 20180502
  Receipt Date: 20180502
  Transmission Date: 20180711
  Serious: No
  Sender: FDA-Public Use
  Company Number: None

PATIENT
  Age: 32 Year
  Sex: Female
  Weight: 99.9 kg

DRUGS (6)
  1. OMEGA 3 FATTY ACID SUPPLEMENT [Concomitant]
  2. PROBIOTIC [Concomitant]
     Active Substance: PROBIOTICS NOS
  3. MULTIVITAMIN [Concomitant]
     Active Substance: VITAMINS
  4. SULFAMETHOXAZOLE-TMP DS TABLET [Suspect]
     Active Substance: SULFAMETHOXAZOLE\TRIMETHOPRIM
     Indication: MASTITIS
     Dosage: ?          QUANTITY:1 DF DOSAGE FORM;?
     Route: 048
     Dates: start: 20180426, end: 20180430
  5. CRANBERRY. [Concomitant]
     Active Substance: CRANBERRY
  6. VITAMIN D [Concomitant]
     Active Substance: CHOLECALCIFEROL

REACTIONS (17)
  - Fatigue [None]
  - Head discomfort [None]
  - Chills [None]
  - Withdrawal syndrome [None]
  - Flushing [None]
  - Headache [None]
  - Pyrexia [None]
  - Dizziness [None]
  - Nausea [None]
  - Presyncope [None]
  - Paraesthesia [None]
  - Decreased appetite [None]
  - Asthenia [None]
  - Photophobia [None]
  - Hypoaesthesia [None]
  - Palpitations [None]
  - Myalgia [None]

NARRATIVE: CASE EVENT DATE: 20180430
